FAERS Safety Report 21851410 (Version 1)
Quarter: 2023Q1

REPORT INFORMATION
  Report Type: Other
  Country: EG (occurrence: EG)
  Receive Date: 20230112
  Receipt Date: 20230112
  Transmission Date: 20230418
  Serious: Yes (Other)
  Sender: FDA-Public Use
  Company Number: EG-002147023-NVSC2023EG002410

PATIENT
  Age: 65 Year
  Sex: Female

DRUGS (4)
  1. LUCENTIS [Suspect]
     Active Substance: RANIBIZUMAB
     Indication: Diabetic retinal oedema
     Route: 050
     Dates: start: 20221017, end: 20221121
  2. AMARYL [Concomitant]
     Active Substance: GLIMEPIRIDE
     Indication: Diabetes mellitus
     Dosage: 1 DOSAGE FORM, QD (BEFORE BREAKFAST)
  3. VILDAGLIPTIN [Concomitant]
     Active Substance: VILDAGLIPTIN
     Indication: Diabetes mellitus
     Dosage: 1 DOSAGE FORM, QD (AFTER LUNCH)
  4. ERASTAPEX [Concomitant]
     Indication: Hypertension
     Dosage: 1 DOSAGE FORM, QD (BEFORE BREAKFAST)

REACTIONS (5)
  - Headache [Recovered/Resolved]
  - Eye pain [Recovered/Resolved]
  - Visual impairment [Not Recovered/Not Resolved]
  - Cataract [Not Recovered/Not Resolved]
  - Eye abscess [Recovering/Resolving]

NARRATIVE: CASE EVENT DATE: 20221017
